FAERS Safety Report 16322243 (Version 1)
Quarter: 2019Q2

REPORT INFORMATION
  Report Type: Spontaneous
  Country: US (occurrence: US)
  Receive Date: 20190516
  Receipt Date: 20190516
  Transmission Date: 20190711
  Serious: Yes (Hospitalization, Other)
  Sender: FDA-Public Use
  Company Number: US-TARO-2018TAR00931

PATIENT
  Sex: Male

DRUGS (3)
  1. UNSPECIFIED OTHER MEDICATION [Suspect]
     Active Substance: UNSPECIFIED INGREDIENT
     Indication: PULMONARY FIBROSIS
     Dosage: UNK
  2. UNSPECIFIED OTHER MEDICATION [Suspect]
     Active Substance: UNSPECIFIED INGREDIENT
     Indication: THYROID DISORDER
  3. AMIODARONE HCL TABLET 200 MG [Suspect]
     Active Substance: AMIODARONE HYDROCHLORIDE
     Indication: ATRIAL FIBRILLATION
     Dosage: UNK
     Dates: start: 201301

REACTIONS (7)
  - Unevaluable event [Unknown]
  - Pulmonary fibrosis [Unknown]
  - Thyroid disorder [Unknown]
  - Weight fluctuation [Unknown]
  - Dizziness [Unknown]
  - Respiratory failure [Unknown]
  - Off label use [Unknown]

NARRATIVE: CASE EVENT DATE: 201301
